FAERS Safety Report 8933597 (Version 2)
Quarter: 2012Q4

REPORT INFORMATION
  Report Type: Report from Study
  Country: CA (occurrence: CA)
  Receive Date: 20121129
  Receipt Date: 20121227
  Transmission Date: 20130627
  Serious: Yes (Hospitalization, Other)
  Sender: FDA-Public Use
  Company Number: CA-ABBOTT-12P-028-1012167-00

PATIENT
  Sex: Female
  Weight: 65.83 kg

DRUGS (2)
  1. HUMIRA [Suspect]
     Indication: CROHN^S DISEASE
     Route: 058
     Dates: start: 201004
  2. ETHINYLESTRADIOL W/NORGESTIMATE [Concomitant]
     Indication: CONTRACEPTION
     Route: 048

REACTIONS (1)
  - Fistula [Recovered/Resolved]
